FAERS Safety Report 13729312 (Version 2)
Quarter: 2017Q3

REPORT INFORMATION
  Report Type: Spontaneous
  Country: PH (occurrence: PH)
  Receive Date: 20170707
  Receipt Date: 20170714
  Transmission Date: 20171127
  Serious: Yes (Hospitalization, Other)
  Sender: FDA-Public Use
  Company Number: PH-PFIZER INC-2017294792

PATIENT
  Age: 15 Year
  Sex: Female

DRUGS (7)
  1. ADENOSINE. [Suspect]
     Active Substance: ADENOSINE
     Indication: MYOCARDITIS
     Dosage: UNK
     Route: 065
  2. ADENOSINE. [Suspect]
     Active Substance: ADENOSINE
     Indication: SUPRAVENTRICULAR TACHYCARDIA
  3. DILTIAZEM HCL [Suspect]
     Active Substance: DILTIAZEM HYDROCHLORIDE
     Indication: SUPRAVENTRICULAR TACHYCARDIA
  4. AMIODARONE HCL [Suspect]
     Active Substance: AMIODARONE HYDROCHLORIDE
     Indication: PALPITATIONS
  5. AMIODARONE HCL [Suspect]
     Active Substance: AMIODARONE HYDROCHLORIDE
     Indication: SUPRAVENTRICULAR TACHYCARDIA
  6. DILTIAZEM HCL [Suspect]
     Active Substance: DILTIAZEM HYDROCHLORIDE
     Indication: MYOCARDITIS
     Dosage: UNK
     Route: 065
  7. AMIODARONE HCL [Suspect]
     Active Substance: AMIODARONE HYDROCHLORIDE
     Indication: MYOCARDITIS
     Dosage: UNK
     Route: 065

REACTIONS (6)
  - Bundle branch block left [Recovering/Resolving]
  - Tachyarrhythmia [Recovering/Resolving]
  - Tachycardia [Recovering/Resolving]
  - Drug ineffective [Recovering/Resolving]
  - Ventricular tachycardia [Recovering/Resolving]
  - Atrioventricular dissociation [Recovering/Resolving]
